FAERS Safety Report 4741370-4 (Version None)
Quarter: 2005Q3

REPORT INFORMATION
  Report Type: 
  Country: None (occurrence: None)
  Receive Date: 20050803
  Receipt Date: 20050312
  Transmission Date: 20060218
  Serious: Yes (Other)
  Sender: FDA-Public Use
  Company Number: 2005-03-1005

PATIENT
  Age: 61 Year
  Sex: Female

DRUGS (1)
  1. INTRON A [Suspect]
     Indication: POLYCYTHAEMIA VERA
     Dosage: 3 MIU 1XWK SUBCUTANEOUS
     Route: 058
     Dates: start: 20000301, end: 20050310

REACTIONS (1)
  - CARDIAC FAILURE CONGESTIVE [None]
